FAERS Safety Report 8604428-5 (Version None)
Quarter: 2012Q3

REPORT INFORMATION
  Report Type: 
  Country: None (occurrence: None)
  Receive Date: 20120806
  Receipt Date: 20120806
  Transmission Date: 20120928
  Serious: Yes (Disabling)
  Sender: FDA-Public Use
  Company Number: None

PATIENT
  Age: 63 Year
  Sex: Female
  Weight: 90.7194 kg

DRUGS (1)
  1. CLOPIDOGREL [Suspect]
     Indication: PERIPHERAL ARTERIAL OCCLUSIVE DISEASE
     Dates: start: 20120618, end: 20120718

REACTIONS (3)
  - THROMBOTIC STROKE [None]
  - PRODUCT SUBSTITUTION ISSUE [None]
  - BLINDNESS [None]
